FAERS Safety Report 24936197 (Version 1)
Quarter: 2025Q1

REPORT INFORMATION
  Report Type: Report from Study
  Country: US (occurrence: US)
  Receive Date: 20250206
  Receipt Date: 20250206
  Transmission Date: 20250408
  Serious: Yes (Hospitalization, Other)
  Sender: EXELIXIS
  Company Number: US-EXELIXIS-EXL-2024-002031

PATIENT
  Sex: Male
  Weight: 80.1 kg

DRUGS (18)
  1. CABOMETYX [Suspect]
     Active Substance: CABOZANTINIB S-MALATE
     Indication: Renal cancer stage IV
     Dosage: 40 MG, QD
     Route: 048
     Dates: start: 20240826
  2. CABOMETYX [Suspect]
     Active Substance: CABOZANTINIB S-MALATE
     Indication: Prostate cancer stage IV
  3. LIPITOR [Concomitant]
     Active Substance: ATORVASTATIN CALCIUM
  4. VITAMIN D3 [Concomitant]
     Active Substance: CHOLECALCIFEROL
  5. FERROUS SULFATE [Concomitant]
     Active Substance: FERROUS SULFATE
  6. FLONASE [Concomitant]
     Active Substance: FLUTICASONE PROPIONATE
  7. AMARYL [Concomitant]
     Active Substance: GLIMEPIRIDE
  8. SYNTHROID [Concomitant]
     Active Substance: LEVOTHYROXINE SODIUM
  9. IMODIUM A-D [Concomitant]
     Active Substance: LOPERAMIDE HYDROCHLORIDE
  10. MAGNESIUM CHLORIDE [Concomitant]
     Active Substance: MAGNESIUM CHLORIDE
  11. ZYPREXA [Concomitant]
     Active Substance: OLANZAPINE
  12. K dur [Concomitant]
  13. RELUGOLIX [Concomitant]
     Active Substance: RELUGOLIX
  14. FLOMAX [Concomitant]
     Active Substance: TAMSULOSIN HYDROCHLORIDE
  15. TENORMIN [Concomitant]
     Active Substance: ATENOLOL
  16. JANUMET [Concomitant]
     Active Substance: METFORMIN HYDROCHLORIDE\SITAGLIPTIN PHOSPHATE
  17. ELIQUIS [Concomitant]
     Active Substance: APIXABAN
     Indication: Deep vein thrombosis
  18. KLOR-CON/EF [Concomitant]
     Active Substance: POTASSIUM BICARBONATE

REACTIONS (10)
  - Diarrhoea [Not Recovered/Not Resolved]
  - Decreased appetite [Recovering/Resolving]
  - Metabolic acidosis [Unknown]
  - Asthenia [Recovering/Resolving]
  - Dehydration [Unknown]
  - Loss of personal independence in daily activities [Unknown]
  - Urinary incontinence [Unknown]
  - Hypersomnia [Unknown]
  - Hypophagia [Unknown]
  - Back pain [Unknown]
